FAERS Safety Report 15954826 (Version 1)
Quarter: 2019Q1

REPORT INFORMATION
  Report Type: Spontaneous
  Country: DE (occurrence: DE)
  Receive Date: 20190213
  Receipt Date: 20190213
  Transmission Date: 20190417
  Serious: Yes (Other)
  Sender: FDA-Public Use
  Company Number: DE-AMGEN-DEUSP2019021326

PATIENT
  Age: 48 Year
  Sex: Female

DRUGS (4)
  1. MIDAZOLAM [Concomitant]
     Active Substance: MIDAZOLAM HYDROCHLORIDE
     Dosage: 7.5 MG, UNK
     Route: 042
     Dates: start: 201707
  2. TALIMOGENE LAHERPAREPVEC [Suspect]
     Active Substance: TALIMOGENE LAHERPAREPVEC
     Indication: METASTATIC MALIGNANT MELANOMA
     Dosage: 2 ML, Q3WK (10^6 PFU/ML, ONE INJECTION)
     Route: 026
     Dates: start: 201707, end: 201707
  3. TALIMOGENE LAHERPAREPVEC [Suspect]
     Active Substance: TALIMOGENE LAHERPAREPVEC
     Dosage: 2 ML, Q3WK (10^8 PFU/ML, TWO INJECTIONS)
     Route: 026
     Dates: start: 2017, end: 2017
  4. DIPYRONE [Concomitant]
     Active Substance: DIPYRONE
     Dosage: 500 MG, UNK
     Route: 042
     Dates: start: 201707

REACTIONS (5)
  - Erythema [Unknown]
  - Oroantral fistula [Not Recovered/Not Resolved]
  - Swelling face [Unknown]
  - Off label use [Unknown]
  - Influenza like illness [Recovering/Resolving]

NARRATIVE: CASE EVENT DATE: 2017
